FAERS Safety Report 11787434 (Version 2)
Quarter: 2015Q4

REPORT INFORMATION
  Report Type: Spontaneous
  Country: ZA (occurrence: ZA)
  Receive Date: 20151130
  Receipt Date: 20151207
  Transmission Date: 20160305
  Serious: Yes (Other)
  Sender: FDA-Public Use
  Company Number: ZA-PFIZER INC-2015409090

PATIENT
  Age: 82 Year
  Sex: Female

DRUGS (2)
  1. GENTAMYCIN [Concomitant]
     Active Substance: GENTAMICIN
     Dosage: 25 MG, UNK
     Route: 057
  2. DEPO-MEDROL [Suspect]
     Active Substance: METHYLPREDNISOLONE ACETATE
     Indication: LENS EXTRACTION
     Dosage: UNK
     Route: 057

REACTIONS (2)
  - Drug administration error [Unknown]
  - Conjunctival ulcer [Recovered/Resolved]
